FAERS Safety Report 4363339-4 (Version None)
Quarter: 2004Q2

REPORT INFORMATION
  Report Type: 
  Country: None (occurrence: None)
  Receive Date: 20040517
  Receipt Date: 20040211
  Transmission Date: 20050107
  Serious: No
  Sender: FDA-Public Use
  Company Number: S04-USA-00574-01

PATIENT
  Age: 88 Year
  Sex: Female

DRUGS (6)
  1. NAMENDA [Suspect]
     Indication: DEMENTIA ALZHEIMER'S TYPE
     Dosage: 5 MG QD PO
     Route: 048
     Dates: start: 20040201, end: 20040207
  2. NAMENDA [Suspect]
     Indication: DEMENTIA ALZHEIMER'S TYPE
     Dosage: 5 MG BID PO
     Route: 048
     Dates: start: 20040208
  3. GLYBURIDE [Concomitant]
  4. ARICEPT [Concomitant]
  5. CELEXA [Concomitant]
  6. ASPIRIN [Concomitant]

REACTIONS (2)
  - CONFUSIONAL STATE [None]
  - ENURESIS [None]
